FAERS Safety Report 7885213-9 (Version None)
Quarter: 2011Q4

REPORT INFORMATION
  Report Type: 
  Country: None (occurrence: None)
  Receive Date: 20111102
  Receipt Date: 20110916
  Transmission Date: 20120403
  Serious: Yes (Other)
  Sender: FDA-Public Use
  Company Number: PHHO2011IL15786

PATIENT
  Sex: Female

DRUGS (10)
  1. PREDNISONE [Suspect]
     Indication: RENAL TRANSPLANT
     Dosage: 5 MG, QD
     Dates: start: 20110427
  2. VALCYTE [Concomitant]
     Indication: ANTIVIRAL PROPHYLAXIS
     Dosage: 450 MG, QD
     Dates: start: 20110519
  3. TACROLIMUS [Suspect]
     Indication: RENAL TRANSPLANT
     Dosage: 1 MG, BID
     Dates: start: 20110427, end: 20110807
  4. TACROLIMUS [Suspect]
     Dosage: 1 M, BID
     Dates: start: 20110808
  5. RAMIPRIL [Concomitant]
     Indication: HYPERTENSION
     Dosage: 1.25 MG, QD
     Dates: start: 20110523
  6. LIPITOR [Concomitant]
     Indication: DYSLIPIDAEMIA
     Dosage: 20 MG, QD
     Dates: start: 20110519
  7. PRILOSEC [Concomitant]
     Indication: PROPHYLAXIS
     Dosage: 20 MG, QD
     Dates: start: 20110519
  8. SIMULECT [Concomitant]
     Indication: RENAL TRANSPLANT
  9. RAD 666 / RAD 001A [Suspect]
     Indication: RENAL TRANSPLANT
     Dosage: 2.5 MG, BID
     Dates: start: 20110707, end: 20110808
  10. MYFORTIC [Suspect]
     Indication: RENAL TRANSPLANT
     Dosage: 360 MG, BID
     Dates: start: 20110428

REACTIONS (1)
  - PROTEINURIA [None]
